FAERS Safety Report 6600686-7 (Version None)
Quarter: 2010Q1

REPORT INFORMATION
  Report Type: 
  Country: None (occurrence: None)
  Receive Date: 20100223
  Receipt Date: 20100223
  Transmission Date: 20100710
  Serious: Yes (Other)
  Sender: FDA-Public Use
  Company Number: None

PATIENT
  Age: 61 Year
  Sex: Female
  Weight: 70.3075 kg

DRUGS (1)
  1. TYLENOL-500 [Suspect]
     Indication: HEADACHE
     Dosage: 2 TABLETS EVERY 6 HOURS PO
     Route: 048
     Dates: start: 20091223, end: 20091226

REACTIONS (4)
  - ABDOMINAL PAIN UPPER [None]
  - CHILLS [None]
  - DIARRHOEA [None]
  - NAUSEA [None]
